FAERS Safety Report 20258181 (Version 1)
Quarter: 2021Q4

REPORT INFORMATION
  Report Type: Report from Study
  Country: BR (occurrence: BR)
  Receive Date: 20211230
  Receipt Date: 20211230
  Transmission Date: 20220303
  Serious: Yes (Hospitalization, Other)
  Sender: FDA-Public Use
  Company Number: BR-NOVARTISPH-NVSC2021BR295739

PATIENT
  Age: 62 Year
  Sex: Female

DRUGS (1)
  1. COSENTYX [Suspect]
     Active Substance: SECUKINUMAB
     Indication: Psoriatic arthropathy
     Dosage: 300 MG
     Route: 065
     Dates: start: 201907

REACTIONS (7)
  - Bacteraemia [Unknown]
  - Breast discharge infected [Unknown]
  - Device related infection [Unknown]
  - Immune system disorder [Unknown]
  - Emotional disorder [Unknown]
  - Pruritus [Recovered/Resolved]
  - Psoriasis [Recovered/Resolved]

NARRATIVE: CASE EVENT DATE: 20210801
